FAERS Safety Report 18259194 (Version 8)
Quarter: 2021Q2

REPORT INFORMATION
  Report Type: Report from Study
  Country: DE (occurrence: DE)
  Receive Date: 20200911
  Receipt Date: 20210531
  Transmission Date: 20210717
  Serious: Yes (Hospitalization, Other)
  Sender: FDA-Public Use
  Company Number: DE-SHIRE-DE202029574

PATIENT
  Age: 66 Year
  Sex: Female
  Weight: 58 kg

DRUGS (17)
  1. TEDUGLUTIDE [Suspect]
     Active Substance: TEDUGLUTIDE
     Dosage: 0.28 MILLILITER, QD
     Route: 058
  2. TEDUGLUTIDE [Suspect]
     Active Substance: TEDUGLUTIDE
     Indication: SHORT-BOWEL SYNDROME
     Dosage: 0.3 MILLILITER/5 MG AMP, 1X/DAY:QD
     Route: 058
     Dates: start: 20200730, end: 20200902
  3. TEDUGLUTIDE [Suspect]
     Active Substance: TEDUGLUTIDE
     Indication: SHORT-BOWEL SYNDROME
     Dosage: 0.3 MILLILITER/5 MG AMP, 1X/DAY:QD
     Route: 058
     Dates: start: 20200730, end: 20200902
  4. TEDUGLUTIDE [Suspect]
     Active Substance: TEDUGLUTIDE
     Indication: SHORT-BOWEL SYNDROME
     Dosage: 0.3 MILLILITER/5 MG AMP, 1X/DAY:QD
     Route: 058
     Dates: start: 20200730, end: 20200902
  5. TEDUGLUTIDE [Suspect]
     Active Substance: TEDUGLUTIDE
     Dosage: 0.3 ML/ 5 MG AMP
     Route: 058
     Dates: start: 20200906, end: 20200921
  6. L THYROX [Concomitant]
     Active Substance: LEVOTHYROXINE SODIUM
     Route: 065
  7. PANTOPRAZOLE [Concomitant]
     Active Substance: PANTOPRAZOLE
     Route: 065
  8. TEDUGLUTIDE [Suspect]
     Active Substance: TEDUGLUTIDE
     Dosage: 0.3 ML/ 5 MG AMP
     Route: 058
     Dates: start: 20200906, end: 20200921
  9. TEDUGLUTIDE [Suspect]
     Active Substance: TEDUGLUTIDE
     Dosage: 0.28 MILLILITER, QD
     Route: 058
  10. TEDUGLUTIDE [Suspect]
     Active Substance: TEDUGLUTIDE
     Dosage: 0.3 ML/ 5 MG AMP
     Route: 058
     Dates: start: 20200906, end: 20200921
  11. LORATADINE. [Concomitant]
     Active Substance: LORATADINE
     Route: 065
  12. TEDUGLUTIDE [Suspect]
     Active Substance: TEDUGLUTIDE
     Dosage: 0.28 MILLILITER, QD
     Route: 058
  13. TEDUGLUTIDE [Suspect]
     Active Substance: TEDUGLUTIDE
     Indication: SHORT-BOWEL SYNDROME
     Dosage: 0.3 MILLILITER/5 MG AMP, 1X/DAY:QD
     Route: 058
     Dates: start: 20200730, end: 20200902
  14. TEDUGLUTIDE [Suspect]
     Active Substance: TEDUGLUTIDE
     Dosage: 0.28 MILLILITER, QD
     Route: 058
  15. BUDENOFALK [Concomitant]
     Active Substance: BUDESONIDE
     Route: 065
  16. TEDUGLUTIDE [Suspect]
     Active Substance: TEDUGLUTIDE
     Dosage: 0.3 ML/ 5 MG AMP
     Route: 058
     Dates: start: 20200906, end: 20200921
  17. LEFAX [SIMETICONE] [Concomitant]
     Route: 065

REACTIONS (4)
  - Inappropriate schedule of product administration [Unknown]
  - Intestinal obstruction [Unknown]
  - Drug intolerance [Recovered/Resolved]
  - Subileus [Recovered/Resolved]

NARRATIVE: CASE EVENT DATE: 20200902
